FAERS Safety Report 5898660-1 (Version None)
Quarter: 2008Q3

REPORT INFORMATION
  Report Type: 
  Country: None (occurrence: None)
  Receive Date: 20080925
  Receipt Date: 20080320
  Transmission Date: 20090109
  Serious: No
  Sender: FDA-Public Use
  Company Number: A0716698A

PATIENT
  Age: 60 Year
  Sex: Female

DRUGS (4)
  1. WELLBUTRIN XL [Suspect]
     Indication: DEPRESSION
     Dosage: 150MG PER DAY
     Route: 048
  2. CHANTIX [Suspect]
     Indication: DRUG USE FOR UNKNOWN INDICATION
     Route: 065
  3. EFFEXOR [Concomitant]
  4. SEROQUEL [Concomitant]

REACTIONS (7)
  - ANXIETY [None]
  - BALANCE DISORDER [None]
  - INSOMNIA [None]
  - PRURITUS [None]
  - SWELLING FACE [None]
  - TINNITUS [None]
  - VOMITING [None]
